FAERS Safety Report 9757122 (Version 2)
Quarter: 2013Q4

REPORT INFORMATION
  Report Type: Spontaneous
  Country: DE (occurrence: DE)
  Receive Date: 20131213
  Receipt Date: 20131226
  Transmission Date: 20140711
  Serious: Yes (Other)
  Sender: FDA-Public Use
  Company Number: DE-GILEAD-2013-0089798

PATIENT
  Age: 61 Year
  Sex: Female

DRUGS (7)
  1. RANOLAZINE [Suspect]
     Indication: ANGINA PECTORIS
     Dosage: 375 MG, BID
     Route: 048
     Dates: start: 201311
  2. RAMIPRIL COMP [Concomitant]
     Indication: HYPERTENSION
  3. RAMIPRIL [Concomitant]
     Indication: HYPERTENSION
  4. LERCANIDIPINE [Concomitant]
     Indication: HYPERTENSION
     Dosage: 10 MG, UNK
  5. L-THYROX [Concomitant]
     Dosage: 75 ?G, QD
  6. BISOPROLOL [Concomitant]
     Dosage: 7.5 MG, UNK
  7. IBUPROFEN [Concomitant]
     Indication: FIBROMYALGIA
     Dosage: 1200 MG, UNK

REACTIONS (2)
  - Angina pectoris [Recovering/Resolving]
  - Hot flush [Not Recovered/Not Resolved]
